FAERS Safety Report 5235838-4 (Version None)
Quarter: 2007Q1

REPORT INFORMATION
  Report Type: 
  Country: None (occurrence: None)
  Receive Date: 20061208
  Receipt Date: 20051201
  Transmission Date: 20070707
  Serious: Yes (Other)
  Sender: FDA-Public Use
  Company Number: 2005UW18153

PATIENT
  Age: 71 Year
  Weight: 86.182 kg

DRUGS (6)
  1. CRESTOR [Suspect]
     Indication: BLOOD CHOLESTEROL INCREASED
     Dosage: 10 MG QD PO
     Route: 048
  2. NIACIN [Concomitant]
  3. MAGSAL [Concomitant]
  4. LUNESTA [Concomitant]
  5. TOPAMAX [Concomitant]
  6. ASPIRIN [Concomitant]

REACTIONS (1)
  - EPISTAXIS [None]
